FAERS Safety Report 4280603-8 (Version None)
Quarter: 2004Q1

REPORT INFORMATION
  Report Type: 
  Country: None (occurrence: None)
  Receive Date: 20040127
  Receipt Date: 20040115
  Transmission Date: 20041129
  Serious: Yes (Hospitalization, Other)
  Sender: FDA-Public Use
  Company Number: 2003116568

PATIENT
  Sex: Female
  Weight: 64.4108 kg

DRUGS (3)
  1. NEURONTIN [Suspect]
     Indication: DEPRESSION
     Dosage: 900 MG TID ORAL
     Route: 048
     Dates: start: 19990101, end: 20030701
  2. CITALOPRAM HYDROBROMIDE [Concomitant]
  3. ATENOLOL [Concomitant]

REACTIONS (8)
  - BACK PAIN [None]
  - BALANCE DISORDER [None]
  - CONVULSION [None]
  - DIZZINESS [None]
  - FALL [None]
  - FEELING ABNORMAL [None]
  - HEADACHE [None]
  - LOSS OF CONSCIOUSNESS [None]
